FAERS Safety Report 14289863 (Version 1)
Quarter: 2017Q4

REPORT INFORMATION
  Report Type: Spontaneous
  Country: US (occurrence: US)
  Receive Date: 20171215
  Receipt Date: 20171215
  Transmission Date: 20180321
  Serious: Yes (Disabling)
  Sender: FDA-Public Use
  Company Number: None

PATIENT
  Age: 46 Year
  Sex: Female
  Weight: 82.8 kg

DRUGS (13)
  1. CALCIUM D GLUCARATE [Concomitant]
  2. MAGNEVIST [Suspect]
     Active Substance: GADOPENTETATE DIMEGLUMINE
     Indication: BRAIN NEOPLASM
     Dates: start: 20170911, end: 20170912
  3. SELENIUM [Concomitant]
     Active Substance: SELENIUM
  4. MAGNESIUM GLYCINATE [Concomitant]
     Active Substance: MAGNESIUM GLYCINATE
  5. PROBIOTIC [Concomitant]
     Active Substance: PROBIOTICS NOS
  6. IRON BYGLYCINATE [Concomitant]
  7. VITAMIN E [Concomitant]
     Active Substance: .ALPHA.-TOCOPHEROL
  8. ZINC. [Concomitant]
     Active Substance: ZINC
  9. VITAMIN B COMPLEX [Concomitant]
     Active Substance: CYANOCOBALAMIN\DEXPANTHENOL\NIACINAMIDE\PYRIDOXINE HYDROCHLORIDE\RIBOFLAVIN 5^-PHOSPHATE SODIUM\THIAMINE HYDROCHLORIDE\VITAMIN B COMPLEX
  10. OPTIMARK [Suspect]
     Active Substance: GADOVERSETAMIDE
  11. VITAMIN D3 [Concomitant]
     Active Substance: CHOLECALCIFEROL
  12. GADOVIST [Suspect]
     Active Substance: GADOBUTROL
  13. BETAINE WITH PEPSIN [Concomitant]

REACTIONS (8)
  - Muscle twitching [None]
  - Pain [None]
  - Muscular weakness [None]
  - Fatigue [None]
  - Autoimmune disorder [None]
  - Paraesthesia [None]
  - Myalgia [None]
  - Arthralgia [None]
